FAERS Safety Report 25022220 (Version 1)
Quarter: 2025Q1

REPORT INFORMATION
  Report Type: Report from Study
  Country: US (occurrence: US)
  Receive Date: 20250228
  Receipt Date: 20250228
  Transmission Date: 20250409
  Serious: Yes (Hospitalization)
  Sender: ALEXION PHARMACEUTICALS
  Company Number: US-AstraZeneca-CH-00812640A

PATIENT
  Weight: 86 kg

DRUGS (29)
  1. ACALABRUTINIB [Suspect]
     Active Substance: ACALABRUTINIB
     Indication: Chronic lymphocytic leukaemia
     Dosage: 100 MILLIGRAM, BID
  2. ACYCLOVIR [Concomitant]
     Active Substance: ACYCLOVIR
     Route: 065
  3. ALLOPURINOL [Concomitant]
     Active Substance: ALLOPURINOL
     Route: 065
  4. ATIVAN [Concomitant]
     Active Substance: LORAZEPAM
     Route: 065
  5. ATORVASTATIN [Concomitant]
     Active Substance: ATORVASTATIN
     Route: 065
  6. CINNAMON [Concomitant]
     Active Substance: CINNAMON
     Route: 065
  7. CALCIUM CITRATE [Concomitant]
     Active Substance: CALCIUM CITRATE
     Route: 065
  8. CLOBETASOL [Concomitant]
     Active Substance: CLOBETASOL
  9. COENZYME Q10 [Concomitant]
     Active Substance: DIETARY SUPPLEMENT\UBIDECARENONE
     Route: 065
  10. DESONIDE [Concomitant]
     Active Substance: DESONIDE
     Route: 065
  11. ELIQUIS [Concomitant]
     Active Substance: APIXABAN
     Route: 065
  12. GABAPENTIN [Concomitant]
     Active Substance: GABAPENTIN
     Route: 065
  13. GLUCOSAMINE [Concomitant]
     Active Substance: GLUCOSAMINE
     Route: 065
  14. HYDROCODONE [Concomitant]
     Active Substance: HYDROCODONE
     Route: 065
  15. IMODIUM [Concomitant]
     Active Substance: LOPERAMIDE HYDROCHLORIDE
     Route: 065
  16. LOSARTAN [Concomitant]
     Active Substance: LOSARTAN
     Route: 065
  17. METFORMIN [Concomitant]
     Active Substance: METFORMIN HYDROCHLORIDE
     Route: 065
  18. MONTELUKAST [Concomitant]
     Active Substance: MONTELUKAST
     Route: 065
  19. VITAMINS [Concomitant]
     Active Substance: VITAMINS
     Route: 065
  20. MUPIROCIN [Concomitant]
     Active Substance: MUPIROCIN
     Route: 065
  21. OMEPRAZOLE [Concomitant]
     Active Substance: OMEPRAZOLE
     Route: 065
  22. PREDNISONE [Concomitant]
     Active Substance: PREDNISONE
     Route: 065
  23. DIETARY SUPPLEMENT [Concomitant]
     Active Substance: DIETARY SUPPLEMENT
  24. VITAMIN D [Concomitant]
     Active Substance: VITAMIN D NOS
     Route: 065
  25. PEPCID [Concomitant]
     Active Substance: FAMOTIDINE
  26. ROBAXIN [Concomitant]
     Active Substance: METHOCARBAMOL
  27. SODIUM CHLORIDE [Concomitant]
     Active Substance: SODIUM CHLORIDE
  28. SPIRONOLACTONE [Concomitant]
     Active Substance: SPIRONOLACTONE
  29. VITAMIN B12 [Concomitant]
     Active Substance: CYANOCOBALAMIN

REACTIONS (1)
  - Pyrexia [Unknown]
